FAERS Safety Report 8231090-6 (Version None)
Quarter: 2012Q1

REPORT INFORMATION
  Report Type: 
  Country: None (occurrence: None)
  Receive Date: 20120322
  Receipt Date: 20120322
  Transmission Date: 20120608
  Serious: Yes (Life-Threatening)
  Sender: FDA-Public Use
  Company Number: None

PATIENT
  Age: 49 Year
  Sex: Male
  Weight: 100.2 kg

DRUGS (2)
  1. NOVOSEVEN DILUENT -HISTIDINE- [Concomitant]
     Indication: COAGULOPATHY
     Dosage: 10 MMOL
     Route: 042
     Dates: start: 20120320, end: 20120320
  2. NOVOSEVEN RT [Suspect]
     Indication: COAGULOPATHY
     Dosage: 2 MG
     Route: 042
     Dates: start: 20120320, end: 20120320

REACTIONS (3)
  - MEDICATION ERROR [None]
  - PRODUCT BARCODE ISSUE [None]
  - WRONG TECHNIQUE IN DRUG USAGE PROCESS [None]
